FAERS Safety Report 4325180-8 (Version None)
Quarter: 2004Q1

REPORT INFORMATION
  Report Type: 
  Country: None (occurrence: None)
  Receive Date: 20040326
  Receipt Date: 20031009
  Transmission Date: 20041129
  Serious: Yes (Hospitalization, Disabling)
  Sender: FDA-Public Use
  Company Number: US-MERCK-0310USA01299

PATIENT
  Age: 57 Year
  Sex: Male
  Weight: 84 kg

DRUGS (9)
  1. ACETAMINOPHEN AND OXYCODONE HYDROCHLORIDE [Concomitant]
     Dates: start: 20000101
  2. AVAPRO [Concomitant]
  3. PROTONIX [Concomitant]
  4. VIOXX [Suspect]
     Indication: OSTEOARTHRITIS
     Route: 048
     Dates: start: 19990101, end: 20020301
  5. VIOXX [Suspect]
     Route: 048
     Dates: start: 20011115
  6. VIOXX [Suspect]
     Route: 048
     Dates: start: 20021016
  7. VIOXX [Suspect]
     Indication: RHEUMATOID ARTHRITIS
     Route: 048
     Dates: start: 19990101, end: 20020301
  8. VIOXX [Suspect]
     Route: 048
     Dates: start: 20011115
  9. VIOXX [Suspect]
     Route: 048
     Dates: start: 20021016

REACTIONS (20)
  - ADVERSE EVENT [None]
  - ANXIETY [None]
  - ARTERIAL RESTENOSIS [None]
  - BARRETT'S OESOPHAGUS [None]
  - BLOOD CHOLESTEROL INCREASED [None]
  - BRADYCARDIA [None]
  - COAGULOPATHY [None]
  - CORONARY ARTERY DISEASE [None]
  - DEPRESSION [None]
  - GASTRIC DISORDER [None]
  - HEART RATE IRREGULAR [None]
  - HYPOTENSION [None]
  - INTERNATIONAL NORMALISED RATIO INCREASED [None]
  - MYOCARDIAL INFARCTION [None]
  - PAIN [None]
  - PALPITATIONS [None]
  - THROMBOSIS [None]
  - TONGUE HAEMORRHAGE [None]
  - VENTRICULAR FIBRILLATION [None]
  - VENTRICULAR TACHYCARDIA [None]
